FAERS Safety Report 8363949-3 (Version None)
Quarter: 2012Q1

REPORT INFORMATION
  Report Type: 
  Country: None (occurrence: None)
  Receive Date: 20120323
  Receipt Date: 20111123
  Transmission Date: 20120608
  Serious: Yes (Hospitalization)
  Sender: FDA-Public Use
  Company Number: 163-21880-11113796

PATIENT
  Age: 58 Year
  Sex: Male
  Weight: 83.9 kg

DRUGS (1)
  1. REVLIMID [Suspect]
     Indication: MULTIPLE MYELOMA
     Dosage: 25 MG, DAILY FOR 14 DAYS, 7 DAYS OFF, 21 DAY, PO
     Route: 048
     Dates: start: 20110217

REACTIONS (1)
  - PULMONARY EMBOLISM [None]
